FAERS Safety Report 8815031 (Version 1)
Quarter: 2012Q4

REPORT INFORMATION
  Report Type: 
  Country: US (occurrence: US)
  Receive Date: 20120928
  Receipt Date: 20120928
  Transmission Date: 20130627
  Serious: Yes (Hospitalization)
  Sender: FDA-Public Use
  Company Number: US-ELI_LILLY_AND_COMPANY-US201207004339

PATIENT
  Age: 80 Year
  Sex: Female

DRUGS (12)
  1. FORTEO [Suspect]
     Indication: OSTEOPOROSIS
     Dosage: 20 ug, qd
     Route: 065
     Dates: start: 201206
  2. FORTEO [Suspect]
     Dosage: 20 ug, qd
     Dates: start: 201206
  3. TRAMADOL [Concomitant]
     Indication: PAIN
     Dosage: UNK, prn
  4. FOLIC ACID [Concomitant]
  5. NEURONTIN [Concomitant]
     Dosage: UNK, prn
  6. PAXIL [Concomitant]
     Dosage: 2 DF, qd
  7. LOVASTATIN [Concomitant]
     Dosage: UNK, qd
  8. CALCIUM + VITAMIN D [Concomitant]
     Dosage: 600 mg, qd
  9. B12-VITAMIN [Concomitant]
     Dosage: UNK, qd
  10. VITAMIN B2 [Concomitant]
     Dosage: UNK, qd
  11. MAGNESIUM [Concomitant]
     Dosage: UNK, qd
  12. IRON SULFATE [Concomitant]
     Dosage: UNK, qd

REACTIONS (2)
  - Knee arthroplasty [Unknown]
  - Back pain [Not Recovered/Not Resolved]
